FAERS Safety Report 24701673 (Version 1)
Quarter: 2024Q4

REPORT INFORMATION
  Report Type: Spontaneous
  Country: TR (occurrence: TR)
  Receive Date: 20241205
  Receipt Date: 20241205
  Transmission Date: 20250115
  Serious: Yes (Other)
  Sender: SANDOZ
  Company Number: TR-002147023-NVSC2024TR229086

PATIENT
  Age: 73 Year
  Sex: Female

DRUGS (5)
  1. EXELON [Suspect]
     Active Substance: RIVASTIGMINE TARTRATE
     Indication: Dementia with Lewy bodies
     Dosage: 1.5 MG (ONE TIME IN A DAY IN THE MORNINGS THEN 2 TIMES A DAY IN THE MORNINGS AND EVENINGS)
     Route: 065
     Dates: end: 2024
  2. EXELON [Suspect]
     Active Substance: RIVASTIGMINE TARTRATE
     Dosage: 3 MG (2 TIMES A DAY IN THE MORNINGS AND EVENINGS)
     Route: 065
     Dates: end: 2024
  3. EXELON [Suspect]
     Active Substance: RIVASTIGMINE TARTRATE
     Dosage: UNK (PATCH 10)
     Route: 065
  4. EXELON [Suspect]
     Active Substance: RIVASTIGMINE TARTRATE
     Dosage: UNK (PATCH 15)
     Route: 065
  5. EXELON [Suspect]
     Active Substance: RIVASTIGMINE TARTRATE
     Indication: Dementia with Lewy bodies
     Dosage: UNK (PATCH 5)
     Route: 065
     Dates: start: 2021

REACTIONS (6)
  - Enteritis infectious [Recovered/Resolved]
  - Gastric infection [Recovered/Resolved]
  - Anal incontinence [Recovered/Resolved]
  - Urinary tract infection [Recovered/Resolved]
  - Urinary incontinence [Recovered/Resolved]
  - Product availability issue [Unknown]
